FAERS Safety Report 8407744-5 (Version None)
Quarter: 2012Q2

REPORT INFORMATION
  Report Type: 
  Country: None (occurrence: None)
  Receive Date: 20120604
  Receipt Date: 20120527
  Transmission Date: 20120825
  Serious: Yes (Hospitalization)
  Sender: FDA-Public Use
  Company Number: US-GLAXOSMITHKLINE-A0974815A

PATIENT
  Age: 33 Year

DRUGS (3)
  1. TRACLEER [Concomitant]
  2. REVATIO [Concomitant]
  3. FLOLAN [Suspect]
     Indication: PRODUCT USED FOR UNKNOWN INDICATION
     Dosage: 5NGKM SEE DOSAGE TEXT
     Route: 042
     Dates: start: 20061120

REACTIONS (9)
  - MEDICAL DEVICE COMPLICATION [None]
  - PYREXIA [None]
  - STAPHYLOCOCCAL INFECTION [None]
  - CATHETER SITE RELATED REACTION [None]
  - NAUSEA [None]
  - LIMB DISCOMFORT [None]
  - DYSPNOEA [None]
  - CHEST PAIN [None]
  - DEVICE LEAKAGE [None]
